FAERS Safety Report 8561549-3 (Version None)
Quarter: 2012Q3

REPORT INFORMATION
  Report Type: 
  Country: None (occurrence: None)
  Receive Date: 20120802
  Receipt Date: 20120730
  Transmission Date: 20120928
  Serious: Yes (Hospitalization)
  Sender: FDA-Public Use
  Company Number: US-ROXANE LABORATORIES, INC.-2012-RO-01624RO

PATIENT
  Sex: Female
  Weight: 49 kg

DRUGS (6)
  1. VITAMIN D12 [Concomitant]
  2. LYRICA [Suspect]
     Dosage: 120 MG
     Route: 048
  3. PREDNISONE [Suspect]
     Dosage: 10 MG
  4. LYRICA [Suspect]
     Indication: FIBROMYALGIA
     Dosage: 150 MG
     Route: 048
     Dates: start: 20080101, end: 20120704
  5. TRAMADOL HCL [Concomitant]
  6. PREVACID [Concomitant]

REACTIONS (10)
  - MENINGITIS [None]
  - WEIGHT DECREASED [None]
  - HYPOTENSION [None]
  - UNEVALUABLE EVENT [None]
  - INSOMNIA [None]
  - PALPITATIONS [None]
  - BLOOD GLUCOSE DECREASED [None]
  - GINGIVAL SWELLING [None]
  - GASTRIC HAEMORRHAGE [None]
  - ABDOMINAL DISCOMFORT [None]
